FAERS Safety Report 8223972-6 (Version None)
Quarter: 2012Q1

REPORT INFORMATION
  Report Type: 
  Country: None (occurrence: None)
  Receive Date: 20120321
  Receipt Date: 20120314
  Transmission Date: 20120608
  Serious: Yes (Other)
  Sender: FDA-Public Use
  Company Number: PHEH2012US005849

PATIENT
  Sex: Male

DRUGS (18)
  1. BYSTOLIC [Suspect]
     Dosage: 10 MG, QD
  2. PLAVIX [Suspect]
     Dosage: 75 MG, QD
  3. BUSPAR [Concomitant]
     Dosage: 15 MG, BID
  4. DIPHENHYDRAMINE HCL [Concomitant]
     Dosage: 50 MG, QD
  5. HALOPERIDOL [Concomitant]
     Dosage: 5 MG, QD
  6. TEMAZEPAM [Concomitant]
     Dosage: 30 MG, QD
  7. TRILEPTAL [Suspect]
     Dosage: 300 MG, QD
  8. HYDROCHLOROTHIAZIDE [Concomitant]
     Dosage: 25 MG, QD
  9. ROPINIROLE [Concomitant]
     Dosage: 2 MG, QD
  10. NEXIUM [Concomitant]
     Dosage: 40 MG, QD
  11. OXCARBAZEPINE [Concomitant]
     Dosage: 2.5, DAILY
  12. GLIPIZIDE [Concomitant]
     Dosage: 10 MG, QD
  13. JANUVIA [Concomitant]
     Dosage: 100 MG, QD
  14. ACIPHEX [Concomitant]
     Dosage: 20 MG, BID
  15. AZOR [Concomitant]
     Dosage: 10.4 MG, QD
  16. MECLIZINE [Concomitant]
     Dosage: 25 MG, BID
  17. TRILIPIX [Suspect]
     Dosage: 135 MG, QD
  18. MORPHINE SULFATE [Concomitant]
     Dosage: 30 MG, BID

REACTIONS (6)
  - BACK INJURY [None]
  - VOMITING [None]
  - SKIN CANCER [None]
  - LIMB INJURY [None]
  - ANXIETY [None]
  - MYOCARDIAL INFARCTION [None]
